FAERS Safety Report 9790032 (Version 1)
Quarter: 2013Q4

REPORT INFORMATION
  Report Type: Spontaneous
  Country: US (occurrence: None)
  Receive Date: 20131230
  Receipt Date: 20131230
  Transmission Date: 20140711
  Serious: Yes (Life-Threatening, Hospitalization, Disabling)
  Sender: FDA-Public Use
  Company Number: None

PATIENT
  Age: 53 Year
  Sex: Male
  Weight: 135.63 kg

DRUGS (2)
  1. MAXI-FED [Suspect]
     Indication: NASAL CONGESTION
     Dosage: 1 PILL
     Route: 048
     Dates: start: 20120429, end: 20120429
  2. METOPROLOL [Suspect]
     Indication: HYPERTENSION
     Dosage: 1.5 PILL/DAY
     Route: 048
     Dates: start: 20130101, end: 20131229

REACTIONS (15)
  - Haemorrhagic stroke [None]
  - Insomnia [None]
  - Oedema [None]
  - Nasal congestion [None]
  - Pneumothorax [None]
  - Cardiac failure [None]
  - Cardiac failure congestive [None]
  - Renal failure [None]
  - Blindness [None]
  - Motor dysfunction [None]
  - Asthenia [None]
  - Dyspepsia [None]
  - Hypophagia [None]
  - Decreased interest [None]
  - Impaired work ability [None]
